FAERS Safety Report 5959378-X (Version None)
Quarter: 2008Q4

REPORT INFORMATION
  Report Type: 
  Country: None (occurrence: None)
  Receive Date: 20081119
  Receipt Date: 20081119
  Transmission Date: 20090506
  Serious: Yes (Hospitalization)
  Sender: FDA-Public Use
  Company Number: None

PATIENT
  Age: 49 Year
  Sex: Male

DRUGS (8)
  1. VANCOMYCIN [Suspect]
     Indication: INFECTION
     Dosage: 1 GM IV Q 12H
     Dates: start: 20080424, end: 20080508
  2. OXYCODONE HCL [Concomitant]
  3. ALPRAZOLAM [Concomitant]
  4. LANSOPRAZOLE [Concomitant]
  5. ENALAPRIL MALEATE [Concomitant]
  6. LORAZEPAM [Concomitant]
  7. NICOTINE [Concomitant]
  8. AZTREOMAN [Concomitant]

REACTIONS (3)
  - INFUSION SITE REACTION [None]
  - PARAESTHESIA [None]
  - RASH [None]
